FAERS Safety Report 25410193 (Version 2)
Quarter: 2025Q3

REPORT INFORMATION
  Report Type: Report from Study
  Country: CA (occurrence: CA)
  Receive Date: 20250608
  Receipt Date: 20250708
  Transmission Date: 20251021
  Serious: Yes (Hospitalization, Other)
  Sender: CSL BEHRING
  Company Number: CA-BEH-2025204803

PATIENT
  Age: 67 Year
  Sex: Female
  Weight: 72.6 kg

DRUGS (5)
  1. HAEMATE P [Suspect]
     Active Substance: ANTIHEMOPHILIC FACTOR HUMAN
     Indication: Von Willebrand^s disease
     Dosage: 4356 IU, TIW
     Route: 042
  2. HAEMATE P [Suspect]
     Active Substance: ANTIHEMOPHILIC FACTOR HUMAN
     Dosage: 4356 IU, TIW
     Route: 042
  3. HAEMATE P [Suspect]
     Active Substance: ANTIHEMOPHILIC FACTOR HUMAN
     Route: 065
     Dates: start: 20250523
  4. HAEMATE P [Suspect]
     Active Substance: ANTIHEMOPHILIC FACTOR HUMAN
     Route: 065
     Dates: start: 20250602
  5. HAEMATE P [Suspect]
     Active Substance: ANTIHEMOPHILIC FACTOR HUMAN
     Dosage: 3500 IU, TIW
     Route: 042
     Dates: start: 20250519

REACTIONS (16)
  - Cardiac operation [Unknown]
  - Limb discomfort [Unknown]
  - Product dose omission issue [Unknown]
  - Hospitalisation [Not Recovered/Not Resolved]
  - Infusion site pruritus [Unknown]
  - Infusion site bruising [Unknown]
  - Dry skin [Unknown]
  - Product use complaint [Unknown]
  - Stress [Unknown]
  - Vomiting [Unknown]
  - Cough [Unknown]
  - Contusion [Unknown]
  - Abdominal pain [Unknown]
  - Abdominal discomfort [Unknown]
  - Diarrhoea [Unknown]
  - Rash [Unknown]

NARRATIVE: CASE EVENT DATE: 20250101
